FAERS Safety Report 4779531-0 (Version None)
Quarter: 2005Q3

REPORT INFORMATION
  Report Type: 
  Country: None (occurrence: None)
  Receive Date: 20050923
  Receipt Date: 20050913
  Transmission Date: 20060218
  Serious: Yes (Other)
  Sender: FDA-Public Use
  Company Number: 2005125896

PATIENT
  Sex: Female
  Weight: 53.5244 kg

DRUGS (19)
  1. PROCARDIA [Suspect]
     Indication: ANGINA PECTORIS
     Dosage: UNK (10 MG, AS NECESSARY), ORAL
     Route: 048
  2. NIMOTOP [Suspect]
     Indication: ILL-DEFINED DISORDER
     Dosage: UNKNOWN
     Route: 065
  3. CALCIUM (CALCIUM) [Concomitant]
  4. PENTOXIFYLLINE [Concomitant]
  5. MAXZIDE [Concomitant]
  6. PLENDIL [Concomitant]
  7. PRIMIDONE [Concomitant]
  8. CELEXA [Concomitant]
  9. INDERAL LA [Concomitant]
  10. PLAVIX [Concomitant]
  11. ZOCOR [Concomitant]
  12. CARDIOTEC (TECHNETIUM TC 99M TEBOROXIME) [Concomitant]
  13. FIORICET [Concomitant]
  14. PREVACID [Concomitant]
  15. TOPROL (METOPROLOL) [Concomitant]
  16. PERCOCET [Concomitant]
  17. TYLOX (OXYCODONE HYDROCHLORIDE, PARACETAMOL) [Concomitant]
  18. COMPAZINE [Concomitant]
  19. VICODIN [Concomitant]

REACTIONS (10)
  - ABDOMINAL DISTENSION [None]
  - BLOOD PRESSURE DECREASED [None]
  - CEREBROVASCULAR ACCIDENT [None]
  - DRUG INEFFECTIVE [None]
  - HOT FLUSH [None]
  - MENORRHAGIA [None]
  - PHARMACEUTICAL PRODUCT COMPLAINT [None]
  - POOR QUALITY DRUG ADMINISTERED [None]
  - TRANSIENT ISCHAEMIC ATTACK [None]
  - WEIGHT INCREASED [None]
